FAERS Safety Report 6473746-1 (Version None)
Quarter: 2009Q4

REPORT INFORMATION
  Report Type: 
  Country: None (occurrence: None)
  Receive Date: 20091204
  Receipt Date: 20091127
  Transmission Date: 20100525
  Serious: Yes (Hospitalization, Other)
  Sender: FDA-Public Use
  Company Number: DE-JNJFOC-20091104242

PATIENT
  Sex: Male
  Weight: 90 kg

DRUGS (6)
  1. RISPERDAL [Suspect]
     Route: 048
     Dates: end: 20091113
  2. RISPERDAL [Suspect]
     Indication: DRUG USE FOR UNKNOWN INDICATION
     Route: 048
     Dates: end: 20091113
  3. HALDOL [Suspect]
     Route: 048
     Dates: end: 20091113
  4. HALDOL [Suspect]
     Indication: DRUG USE FOR UNKNOWN INDICATION
     Route: 048
     Dates: end: 20091113
  5. LORAZEPAM [Suspect]
     Route: 048
     Dates: end: 20091113
  6. LORAZEPAM [Suspect]
     Indication: DRUG USE FOR UNKNOWN INDICATION
     Route: 048
     Dates: end: 20091113

REACTIONS (3)
  - FATIGUE [None]
  - MULTIPLE DRUG OVERDOSE INTENTIONAL [None]
  - SUICIDE ATTEMPT [None]
